FAERS Safety Report 9192779 (Version 2)
Quarter: 2013Q2

REPORT INFORMATION
  Report Type: Spontaneous
  Country: US (occurrence: None)
  Receive Date: 20130325
  Receipt Date: 20130408
  Transmission Date: 20140414
  Serious: Yes (Other)
  Sender: FDA-Public Use
  Company Number: US-1197120

PATIENT
  Age: 78 Year
  Sex: Female
  Weight: 58.06 kg

DRUGS (7)
  1. LATANOPROST [Suspect]
     Indication: GLAUCOMA
     Route: 047
     Dates: end: 20130303
  2. SIMVASTATIN [Concomitant]
  3. TEMAZEPAM [Concomitant]
  4. DIPRIDAMOLE [Concomitant]
  5. OMEPRAZOLE [Concomitant]
  6. SYNTHROID [Concomitant]
  7. TIMOLOL [Concomitant]

REACTIONS (2)
  - Migraine [None]
  - Eye pain [None]
